FAERS Safety Report 7691624-7 (Version None)
Quarter: 2011Q3

REPORT INFORMATION
  Report Type: 
  Country: None (occurrence: None)
  Receive Date: 20110818
  Receipt Date: 20110815
  Transmission Date: 20111222
  Serious: Yes (Other)
  Sender: FDA-Public Use
  Company Number: CN-ASTRAZENECA-2011SE48531

PATIENT
  Age: 62 Year
  Sex: Male

DRUGS (2)
  1. LIDOCAINE [Suspect]
     Indication: ANAESTHESIA
     Route: 042
  2. BUPICAINE [Concomitant]

REACTIONS (5)
  - RETINAL ARTERY OCCLUSION [None]
  - VISUAL IMPAIRMENT [None]
  - BLINDNESS UNILATERAL [None]
  - VISION BLURRED [None]
  - AMAUROSIS [None]
